FAERS Safety Report 6620229-1 (Version None)
Quarter: 2010Q1

REPORT INFORMATION
  Report Type: 
  Country: None (occurrence: None)
  Receive Date: 20100308
  Receipt Date: 20100308
  Transmission Date: 20100710
  Serious: Yes (Life-Threatening, Hospitalization, Disabling, Other)
  Sender: FDA-Public Use
  Company Number: None

PATIENT
  Age: 79 Year
  Sex: Male
  Weight: 74.8435 kg

DRUGS (1)
  1. CREON [Suspect]
     Dosage: 4 CAP PER DAY DAILY ORAL
     Route: 048
     Dates: start: 20090424, end: 20100225

REACTIONS (2)
  - CONSTIPATION [None]
  - DIARRHOEA [None]
